FAERS Safety Report 9336371 (Version 1)
Quarter: 2013Q2

REPORT INFORMATION
  Report Type: Spontaneous
  Country: FR (occurrence: FR)
  Receive Date: 20130607
  Receipt Date: 20130607
  Transmission Date: 20140414
  Serious: Yes (Hospitalization)
  Sender: FDA-Public Use
  Company Number: FR-ROCHE-1233944

PATIENT
  Age: 61 Year
  Sex: Female

DRUGS (4)
  1. XOLAIR [Suspect]
     Indication: ASTHMA
     Route: 058
     Dates: start: 20120415
  2. SOLUPRED (FRANCE) [Concomitant]
  3. BRICANYL [Concomitant]
  4. ATROVENT [Concomitant]

REACTIONS (1)
  - Guillain-Barre syndrome [Not Recovered/Not Resolved]
